FAERS Safety Report 7740164 (Version 5)
Quarter: 2012Q4

REPORT INFORMATION
  Report Type: 
  Country: JP (occurrence: US)
  Receive Date: 20101227
  Receipt Date: 20121011
  Transmission Date: 20130627
  Serious: Yes (Hospitalization, Other)
  Sender: FDA-Public Use
  Company Number: US-JNJFOC-20100804842

PATIENT
  Age: 45 None
  Sex: Female
  Weight: 72.58 kg

DRUGS (10)
  1. LEVAQUIN [Suspect]
     Indication: VIRAL INFECTION
     Route: 048
     Dates: start: 20070726, end: 20070731
  2. LEVAQUIN [Suspect]
     Indication: VIRAL INFECTION
     Route: 048
     Dates: start: 2004
  3. LEVAQUIN [Suspect]
     Indication: PNEUMONIA
     Route: 048
     Dates: start: 20070726, end: 20070731
  4. LEVAQUIN [Suspect]
     Indication: PNEUMONIA
     Route: 048
     Dates: start: 2004
  5. LEVAQUIN [Suspect]
     Indication: INFLUENZA
     Route: 048
     Dates: start: 2004
  6. LEVAQUIN [Suspect]
     Indication: INFLUENZA
     Route: 048
     Dates: start: 20070726, end: 20070731
  7. LEVAQUIN [Suspect]
     Indication: NASOPHARYNGITIS
     Route: 048
     Dates: start: 20070726, end: 20070731
  8. LEVAQUIN [Suspect]
     Indication: NASOPHARYNGITIS
     Route: 048
     Dates: start: 2004
  9. LEVAQUIN [Suspect]
     Indication: PRODUCT USED FOR UNKNOWN INDICATION
     Route: 042
     Dates: start: 20041120
  10. PREDNISONE [Suspect]
     Indication: CHRONIC OBSTRUCTIVE PULMONARY DISEASE
     Route: 065

REACTIONS (6)
  - Tendon rupture [Recovering/Resolving]
  - Meniscus injury [Recovering/Resolving]
  - Tendonitis [Unknown]
  - Depression [Unknown]
  - Anxiety [Unknown]
  - Plantar fasciitis [Unknown]
